FAERS Safety Report 8611634-2 (Version None)
Quarter: 2012Q3

REPORT INFORMATION
  Report Type: 
  Country: None (occurrence: None)
  Receive Date: 20120822
  Receipt Date: 20120814
  Transmission Date: 20120928
  Serious: Yes (Hospitalization)
  Sender: FDA-Public Use
  Company Number: SE-ASTRAZENECA-2012SE57284

PATIENT
  Age: 25986 Day
  Sex: Female
  Weight: 77 kg

DRUGS (3)
  1. AMLODIPIN ACCORD [Concomitant]
  2. SALURES [Concomitant]
  3. ATACAND [Suspect]
     Route: 048

REACTIONS (4)
  - URTICARIA [None]
  - DYSPHONIA [None]
  - HYPERSENSITIVITY [None]
  - DYSPNOEA [None]
